FAERS Safety Report 4769076-6 (Version None)
Quarter: 2005Q3

REPORT INFORMATION
  Report Type: 
  Country: None (occurrence: None)
  Receive Date: 20050906
  Receipt Date: 20050503
  Transmission Date: 20060218
  Serious: No
  Sender: FDA-Public Use
  Company Number: 2005-BP-06185BP

PATIENT
  Age: 83 Year
  Sex: Female
  Weight: 69.85 kg

DRUGS (5)
  1. SPIRIVA [Suspect]
     Indication: CHRONIC OBSTRUCTIVE PULMONARY DISEASE
     Dosage: (18 MCG), IH
     Route: 055
  2. SYNTHROID [Concomitant]
  3. ACETYLSALICYLIC ACID SRT [Concomitant]
  4. LASIX [Concomitant]
  5. PROTONIX [Concomitant]

REACTIONS (2)
  - CONDITION AGGRAVATED [None]
  - PULMONARY CONGESTION [None]
